FAERS Safety Report 10576381 (Version 1)
Quarter: 2014Q4

REPORT INFORMATION
  Report Type: Spontaneous
  Country: JP (occurrence: None)
  Receive Date: 20141107
  Receipt Date: 20141107
  Transmission Date: 20150529
  Serious: Yes (Hospitalization)
  Sender: FDA-Public Use
  Company Number: JP-017283

PATIENT
  Age: 78 Year
  Sex: Male

DRUGS (3)
  1. DEGARELIX [Suspect]
     Active Substance: DEGARELIX
     Indication: PROSTATE CANCER
     Dosage: 240 MG 1X/4 WEEKS SUBCUTANEOUS)
     Route: 058
     Dates: start: 20140411, end: 20140411
  2. MAGLAX [Concomitant]
     Active Substance: MAGNESIUM OXIDE
  3. WHITE PETROLATUM [Concomitant]
     Active Substance: PETROLATUM

REACTIONS (1)
  - Diabetes mellitus [None]

NARRATIVE: CASE EVENT DATE: 20140919
